FAERS Safety Report 5959571-6 (Version None)
Quarter: 2008Q4

REPORT INFORMATION
  Report Type: 
  Country: None (occurrence: None)
  Receive Date: 20081120
  Receipt Date: 20081111
  Transmission Date: 20090506
  Serious: Yes (Hospitalization)
  Sender: FDA-Public Use
  Company Number: US-JNJFOC-20081104100

PATIENT
  Sex: Female
  Weight: 47.63 kg

DRUGS (2)
  1. DURAGESIC-100 [Suspect]
     Indication: PAIN
     Route: 062
  2. UNKNOWN MEDICATIONS [Concomitant]
     Route: 065

REACTIONS (8)
  - CONSTIPATION [None]
  - HYSTERECTOMY [None]
  - INCORRECT DRUG ADMINISTRATION DURATION [None]
  - IRRITABLE BOWEL SYNDROME [None]
  - PANCREATIC DISORDER [None]
  - ULCER [None]
  - WITHDRAWAL SYNDROME [None]
  - WRONG TECHNIQUE IN DRUG USAGE PROCESS [None]
